FAERS Safety Report 5080711-8 (Version None)
Quarter: 2006Q3

REPORT INFORMATION
  Report Type: 
  Country: None (occurrence: None)
  Receive Date: 20060809
  Receipt Date: 20060724
  Transmission Date: 20061208
  Serious: Yes (Hospitalization, Other)
  Sender: FDA-Public Use
  Company Number: 2006AL001993

PATIENT
  Age: 73 Year
  Sex: Female

DRUGS (10)
  1. RANITIDINE [Suspect]
  2. MULTIRET FOLIC 500 TABLETS (ATLLC) (MULTIRET FOLIC 500 TABLETS (ATLLC) [Suspect]
  3. HUMIRA [Concomitant]
  4. ETIDRONIC ACID [Concomitant]
  5. TENORETIC 100 [Concomitant]
  6. ALENDRONATE SODIUM [Concomitant]
  7. OMEPRAZOLE [Concomitant]
  8. ARTHROTEC [Concomitant]
  9. METHOTREXATE [Concomitant]
  10. PREDNISOLONE [Concomitant]

REACTIONS (4)
  - DIARRHOEA [None]
  - ESCHERICHIA INFECTION [None]
  - GASTRIC INFECTION [None]
  - URINARY TRACT INFECTION [None]
